FAERS Safety Report 17295179 (Version 1)
Quarter: 2020Q1

REPORT INFORMATION
  Report Type: Spontaneous
  Country: CA (occurrence: CA)
  Receive Date: 20200121
  Receipt Date: 20200121
  Transmission Date: 20200409
  Serious: Yes (Life-Threatening, Hospitalization, Other)
  Sender: FDA-Public Use
  Company Number: CA-TEVA-2020-CA-1170549

PATIENT
  Age: 50 Year
  Sex: Female

DRUGS (4)
  1. OMALIZUMAB. [Suspect]
     Active Substance: OMALIZUMAB
     Indication: ASTHMA
     Route: 058
  2. SALBUTAMOL [Suspect]
     Active Substance: ALBUTEROL
     Indication: PRODUCT USED FOR UNKNOWN INDICATION
     Route: 065
  3. OMALIZUMAB. [Suspect]
     Active Substance: OMALIZUMAB
     Route: 058
  4. EPIPEN [Suspect]
     Active Substance: EPINEPHRINE
     Indication: PRODUCT USED FOR UNKNOWN INDICATION
     Route: 030

REACTIONS (42)
  - Blood pressure systolic increased [Not Recovered/Not Resolved]
  - Vocal cord dysfunction [Not Recovered/Not Resolved]
  - Anxiety [Not Recovered/Not Resolved]
  - Decreased appetite [Not Recovered/Not Resolved]
  - Dust allergy [Not Recovered/Not Resolved]
  - Malaise [Not Recovered/Not Resolved]
  - Dermatitis contact [Not Recovered/Not Resolved]
  - Dysphonia [Not Recovered/Not Resolved]
  - Feeling abnormal [Not Recovered/Not Resolved]
  - Forced vital capacity abnormal [Not Recovered/Not Resolved]
  - Hormone level abnormal [Not Recovered/Not Resolved]
  - Larynx irritation [Not Recovered/Not Resolved]
  - Nervous system disorder [Not Recovered/Not Resolved]
  - Panic attack [Not Recovered/Not Resolved]
  - Smoke sensitivity [Not Recovered/Not Resolved]
  - Throat tightness [Not Recovered/Not Resolved]
  - Asthma [Not Recovered/Not Resolved]
  - Central pain syndrome [Not Recovered/Not Resolved]
  - Dysphagia [Not Recovered/Not Resolved]
  - Anaphylactic reaction [Not Recovered/Not Resolved]
  - Fatigue [Not Recovered/Not Resolved]
  - Immune system disorder [Not Recovered/Not Resolved]
  - Caffeine allergy [Not Recovered/Not Resolved]
  - Drug ineffective [Not Recovered/Not Resolved]
  - Perfume sensitivity [Not Recovered/Not Resolved]
  - Injection site reaction [Not Recovered/Not Resolved]
  - Pulmonary oedema [Not Recovered/Not Resolved]
  - Throat irritation [Not Recovered/Not Resolved]
  - Allergy to chemicals [Not Recovered/Not Resolved]
  - Chronic sinusitis [Not Recovered/Not Resolved]
  - Drug hypersensitivity [Not Recovered/Not Resolved]
  - Fibromyalgia [Not Recovered/Not Resolved]
  - Insomnia [Not Recovered/Not Resolved]
  - Muscle tightness [Not Recovered/Not Resolved]
  - Obstructive airways disorder [Not Recovered/Not Resolved]
  - Post-traumatic stress disorder [Not Recovered/Not Resolved]
  - Chest discomfort [Not Recovered/Not Resolved]
  - Depression [Not Recovered/Not Resolved]
  - Dyspnoea [Not Recovered/Not Resolved]
  - Nasal congestion [Not Recovered/Not Resolved]
  - Sensitisation [Not Recovered/Not Resolved]
  - Speech disorder [Not Recovered/Not Resolved]
